FAERS Safety Report 11081301 (Version 2)
Quarter: 2017Q2

REPORT INFORMATION
  Report Type: Spontaneous
  Country: US (occurrence: US)
  Receive Date: 20150501
  Receipt Date: 20170504
  Transmission Date: 20170829
  Serious: No
  Sender: FDA-Public Use
  Company Number: US-ABBVIE-14P-163-1254082-00

PATIENT
  Sex: Female

DRUGS (2)
  1. CREON [Suspect]
     Active Substance: PANCRELIPASE AMYLASE\PANCRELIPASE LIPASE\PANCRELIPASE PROTEASE
     Indication: PRODUCT USED FOR UNKNOWN INDICATION
     Route: 065
  2. CREON [Suspect]
     Active Substance: PANCRELIPASE AMYLASE\PANCRELIPASE LIPASE\PANCRELIPASE PROTEASE
     Route: 065

REACTIONS (5)
  - Gastric disorder [Unknown]
  - Malaise [Unknown]
  - Food craving [Unknown]
  - Abdominal pain upper [Unknown]
  - Steatorrhoea [Unknown]
